FAERS Safety Report 9333675 (Version 1)
Quarter: 2013Q2

REPORT INFORMATION
  Report Type: Spontaneous
  Country: US (occurrence: US)
  Receive Date: 20130606
  Receipt Date: 20130606
  Transmission Date: 20140414
  Serious: No
  Sender: FDA-Public Use
  Company Number: US-AMGEN-USASP2012083638

PATIENT
  Age: 65 Year
  Sex: Female

DRUGS (8)
  1. PROLIA [Suspect]
     Indication: OSTEOPOROSIS POSTMENOPAUSAL
  2. MUSCLE RELAXANTS [Concomitant]
  3. VICODIN [Concomitant]
     Dosage: UNK UNK, QD
  4. ANTIDEPRESSANTS [Concomitant]
  5. ATORVASTATIN [Concomitant]
     Dosage: 10 MG, QD
  6. CLONAZEPAM [Concomitant]
     Dosage: 0.25 MG, QD
  7. BACLOFEN [Concomitant]
     Dosage: 10 MG, UNK
  8. NAPROXEN [Concomitant]
     Dosage: 500 MG, UNK

REACTIONS (1)
  - Back pain [Recovered/Resolved]
